FAERS Safety Report 4897567-6 (Version None)
Quarter: 2006Q1

REPORT INFORMATION
  Report Type: 
  Country: None (occurrence: None)
  Receive Date: 20060130
  Receipt Date: 20060130
  Transmission Date: 20060701
  Serious: Yes (Hospitalization)
  Sender: FDA-Public Use
  Company Number: None

PATIENT
  Sex: Female
  Weight: 80.2867 kg

DRUGS (3)
  1. VIDAZA [Suspect]
     Indication: ACUTE MYELOID LEUKAEMIA
     Dosage: QDX5 DAYS SC
     Route: 058
     Dates: start: 20060113, end: 20060104
  2. VIDAZA [Suspect]
     Indication: ACUTE MYELOID LEUKAEMIA
     Dosage: QDX5 DAYS SC
     Route: 058
     Dates: start: 20060111, end: 20060115
  3. THALIDOMIDE [Suspect]
     Indication: ACUTE MYELOID LEUKAEMIA
     Dosage: 100 MG QD@HS PO
     Route: 048
     Dates: start: 20060103

REACTIONS (1)
  - PAROTITIS [None]
